FAERS Safety Report 22989398 (Version 12)
Quarter: 2025Q3

REPORT INFORMATION
  Report Type: Spontaneous
  Country: EU (occurrence: EU)
  Receive Date: 20230927
  Receipt Date: 20250917
  Transmission Date: 20251021
  Serious: Yes (Life-Threatening, Hospitalization, Other)
  Sender: SANDOZ
  Company Number: EU-PFIZER INC-PV202300157894

PATIENT
  Age: 42 Year
  Sex: Female

DRUGS (31)
  1. AVIBACTAM [Suspect]
     Active Substance: AVIBACTAM
     Indication: Product used for unknown indication
     Route: 065
  2. KETAMINE [Suspect]
     Active Substance: KETAMINE
     Indication: Product used for unknown indication
     Route: 065
  3. LEVOFLOXACIN [Suspect]
     Active Substance: LEVOFLOXACIN
     Indication: Antibiotic therapy
     Route: 065
  4. LEVOFLOXACIN [Suspect]
     Active Substance: LEVOFLOXACIN
     Indication: Pneumonia
     Route: 065
  5. LEVOFLOXACIN [Suspect]
     Active Substance: LEVOFLOXACIN
     Indication: Condition aggravated
  6. MEROPENEM [Suspect]
     Active Substance: MEROPENEM
     Indication: Antibiotic therapy
     Route: 065
  7. MEROPENEM [Suspect]
     Active Substance: MEROPENEM
     Indication: Condition aggravated
  8. MEROPENEM [Suspect]
     Active Substance: MEROPENEM
     Indication: Pneumonia
  9. MEROPENEM [Suspect]
     Active Substance: MEROPENEM
     Indication: Pneumonia
     Route: 065
  10. MEROPENEM [Suspect]
     Active Substance: MEROPENEM
     Indication: Bronchopulmonary aspergillosis
  11. MEROPENEM [Suspect]
     Active Substance: MEROPENEM
     Indication: Condition aggravated
  12. METRONIDAZOLE [Suspect]
     Active Substance: METRONIDAZOLE
     Indication: Antibiotic therapy
     Route: 065
  13. METRONIDAZOLE [Suspect]
     Active Substance: METRONIDAZOLE
     Indication: Sepsis
  14. METRONIDAZOLE [Suspect]
     Active Substance: METRONIDAZOLE
     Indication: Sepsis
  15. MOXIFLOXACIN [Suspect]
     Active Substance: MOXIFLOXACIN
     Indication: Antibiotic therapy
     Route: 065
  16. MOXIFLOXACIN [Suspect]
     Active Substance: MOXIFLOXACIN
     Indication: Asthma
     Route: 065
  17. MOXIFLOXACIN [Suspect]
     Active Substance: MOXIFLOXACIN
     Indication: Sepsis
  18. NOREPINEPHRINE BITARTRATE [Suspect]
     Active Substance: NOREPINEPHRINE BITARTRATE
     Indication: Cardiovascular disorder
     Route: 065
  19. CRESEMBA [Concomitant]
     Active Substance: ISAVUCONAZONIUM SULFATE
     Indication: Antifungal treatment
     Route: 065
  20. ANIDULAFUNGIN [Concomitant]
     Active Substance: ANIDULAFUNGIN
     Indication: Antifungal treatment
     Route: 065
  21. LEVOFLOXACIN [Concomitant]
     Active Substance: LEVOFLOXACIN
     Indication: Condition aggravated
     Route: 065
  22. NOREPINEPHRINE [Concomitant]
     Active Substance: NOREPINEPHRINE
     Indication: Product used for unknown indication
     Route: 065
  23. NOREPINEPHRINE [Concomitant]
     Active Substance: NOREPINEPHRINE
     Route: 065
  24. LINEZOLID [Interacting]
     Active Substance: LINEZOLID
     Indication: Antibiotic therapy
     Route: 065
  25. LINEZOLID [Interacting]
     Active Substance: LINEZOLID
     Indication: Asthma
     Route: 065
  26. LINEZOLID [Interacting]
     Active Substance: LINEZOLID
     Indication: Bronchopulmonary aspergillosis
  27. LINEZOLID [Interacting]
     Active Substance: LINEZOLID
     Indication: Sepsis
  28. VORICONAZOLE [Interacting]
     Active Substance: VORICONAZOLE
     Indication: Asthma
     Dosage: 600 MILLIGRAM, ONCE A DAY
     Route: 042
  29. VORICONAZOLE [Interacting]
     Active Substance: VORICONAZOLE
     Indication: Aspergillus infection
     Route: 065
  30. VORICONAZOLE [Interacting]
     Active Substance: VORICONAZOLE
     Indication: Antifungal treatment
  31. VORICONAZOLE [Interacting]
     Active Substance: VORICONAZOLE
     Indication: Bronchopulmonary aspergillosis

REACTIONS (13)
  - Respiratory acidosis [Unknown]
  - Respiratory failure [Unknown]
  - Hypoxia [Recovering/Resolving]
  - Condition aggravated [Recovering/Resolving]
  - Disease progression [Recovered/Resolved]
  - Sepsis [Recovered/Resolved]
  - Therapeutic product effect incomplete [Unknown]
  - Liver disorder [Recovered/Resolved]
  - Drug level below therapeutic [Recovered/Resolved]
  - Drug interaction [Recovered/Resolved]
  - Drug ineffective [Recovered/Resolved]
  - No adverse event [Unknown]
  - Product use in unapproved indication [Recovered/Resolved]
